FAERS Safety Report 7310930-9 (Version None)
Quarter: 2011Q1

REPORT INFORMATION
  Report Type: 
  Country: None (occurrence: None)
  Receive Date: 20110224
  Receipt Date: 20110117
  Transmission Date: 20110831
  Serious: Yes (Other)
  Sender: FDA-Public Use
  Company Number: PHHY2010DE84980

PATIENT
  Sex: Male

DRUGS (1)
  1. TIMOX [Suspect]
     Indication: EPILEPSY
     Dosage: 300-0-450 MG/DAY
     Route: 048

REACTIONS (5)
  - ACTIVATED PARTIAL THROMBOPLASTIN TIME PROLONGED [None]
  - THROMBIN TIME PROLONGED [None]
  - BLOOD FIBRINOGEN DECREASED [None]
  - COAGULOPATHY [None]
  - PROTHROMBIN TIME PROLONGED [None]
